FAERS Safety Report 17006352 (Version 1)
Quarter: 2019Q4

REPORT INFORMATION
  Report Type: Spontaneous
  Country: US (occurrence: US)
  Receive Date: 20191107
  Receipt Date: 20191107
  Transmission Date: 20200122
  Serious: Yes (Other)
  Sender: FDA-Public Use
  Company Number: US-TEVA-2019-US-1132452

PATIENT
  Sex: Female

DRUGS (1)
  1. ENOXAPARIN SODIUM INJECTION [Suspect]
     Active Substance: ENOXAPARIN SODIUM
     Dosage: ENOXAPARIN PRE-FILLED SYRINGES USED SEVERAL YEARS
     Route: 065

REACTIONS (1)
  - Dementia [Unknown]
